FAERS Safety Report 5005311-7 (Version None)
Quarter: 2006Q2

REPORT INFORMATION
  Report Type: 
  Country: None (occurrence: None)
  Receive Date: 20060518
  Receipt Date: 20020128
  Transmission Date: 20061013
  Serious: Yes (Other)
  Sender: FDA-Public Use
  Company Number: DE-GLAXOSMITHKLINE-D0025264A

PATIENT
  Age: 42 Year
  Sex: Male
  Weight: 75.7 kg

DRUGS (3)
  1. ZIAGEN [Suspect]
     Indication: HIV INFECTION
     Dosage: 300MG TWICE PER DAY
     Route: 048
     Dates: start: 19990715
  2. COMBIVIR [Suspect]
     Indication: HIV INFECTION
     Dosage: 450MG PER DAY
     Route: 048
     Dates: start: 19970411
  3. MULTIPLE MEDICATION [Concomitant]
     Indication: HIV INFECTION
     Route: 065

REACTIONS (4)
  - FAT REDISTRIBUTION [None]
  - HEPATIC STEATOSIS [None]
  - PRURITUS [None]
  - URTICARIA [None]
